FAERS Safety Report 5248203-0 (Version None)
Quarter: 2007Q1

REPORT INFORMATION
  Report Type: 
  Country: None (occurrence: None)
  Receive Date: 20070227
  Receipt Date: 20060707
  Transmission Date: 20070707
  Serious: No
  Sender: FDA-Public Use
  Company Number: US-BRISTOL-MYERS SQUIBB COMPANY-13436209

PATIENT
  Age: 85 Year
  Sex: Female
  Weight: 115 kg

DRUGS (3)
  1. GLUCOPHAGE [Suspect]
     Indication: DIABETES MELLITUS
     Dates: start: 20060701
  2. ALLOPURINOL SODIUM [Concomitant]
  3. OXYGEN [Concomitant]

REACTIONS (4)
  - ANOREXIA [None]
  - FEELING COLD [None]
  - NAUSEA [None]
  - PAIN IN EXTREMITY [None]
